FAERS Safety Report 6691558-0 (Version None)
Quarter: 2010Q2

REPORT INFORMATION
  Report Type: 
  Country: None (occurrence: None)
  Receive Date: 20100419
  Receipt Date: 20100405
  Transmission Date: 20101027
  Serious: Yes (Death, Other)
  Sender: FDA-Public Use
  Company Number: 009470

PATIENT
  Age: 57 Year
  Sex: Female

DRUGS (8)
  1. BUSULFEX [Suspect]
     Indication: STEM CELL TRANSPLANT
     Dosage: INTRAVENOUS
     Route: 042
  2. CYCLOPHOSPHAMIDE [Concomitant]
  3. ANTITHYMOCYTE IMMUNOGLOBULIN [Concomitant]
  4. CYCLOSPORINE [Concomitant]
  5. METHOTREXATE [Concomitant]
  6. NILOTINIB [Concomitant]
  7. DASATINIB [Concomitant]
  8. IMATINIB MESYLATE [Concomitant]

REACTIONS (5)
  - BLAST CELL CRISIS [None]
  - CHRONIC MYELOID LEUKAEMIA [None]
  - LEUKAEMIA RECURRENT [None]
  - STENOTROPHOMONAS INFECTION [None]
  - STREPTOCOCCAL INFECTION [None]
